FAERS Safety Report 22660025 (Version 1)
Quarter: 2023Q2

REPORT INFORMATION
  Report Type: Spontaneous
  Country: US (occurrence: US)
  Receive Date: 20230630
  Receipt Date: 20230630
  Transmission Date: 20230721
  Serious: No
  Sender: FDA-Public Use
  Company Number: US-PFIZER INC-PV202200041560

PATIENT
  Age: 71 Year
  Sex: Female

DRUGS (1)
  1. ESTRADIOL CYPIONATE [Suspect]
     Active Substance: ESTRADIOL CYPIONATE
     Dosage: 5 MG

REACTIONS (6)
  - Malaise [Unknown]
  - Asthenia [Unknown]
  - Migraine [Unknown]
  - Pain [Unknown]
  - Fatigue [Unknown]
  - Depression [Unknown]
